FAERS Safety Report 12948016 (Version 1)
Quarter: 2016Q4

REPORT INFORMATION
  Report Type: Spontaneous
  Country: US (occurrence: US)
  Receive Date: 20161116
  Receipt Date: 20161116
  Transmission Date: 20170207
  Serious: No
  Sender: FDA-Public Use
  Company Number: US-BAYER-2016-218876

PATIENT
  Age: 63 Year
  Sex: Male

DRUGS (1)
  1. GADAVIST [Suspect]
     Active Substance: GADOBUTROL
     Indication: OSTEOMYELITIS
     Dosage: UNK UNK, ONCE
     Dates: start: 20161113

REACTIONS (3)
  - Vomiting [Recovered/Resolved]
  - Product use issue [None]
  - Nausea [Recovered/Resolved]

NARRATIVE: CASE EVENT DATE: 20161113
